FAERS Safety Report 11564539 (Version 1)
Quarter: 2015Q3

REPORT INFORMATION
  Report Type: Spontaneous
  Country: US (occurrence: US)
  Receive Date: 20150928
  Receipt Date: 20150928
  Transmission Date: 20151125
  Serious: Yes (Other)
  Sender: FDA-Public Use
  Company Number: US-ELI_LILLY_AND_COMPANY-US201509008340

PATIENT
  Sex: Male

DRUGS (1)
  1. INSULIN HUMAN [Suspect]
     Active Substance: INSULIN HUMAN
     Indication: TYPE 2 DIABETES MELLITUS
     Dosage: 20 U, TID
     Route: 065
     Dates: start: 2012

REACTIONS (2)
  - Blood glucose increased [Not Recovered/Not Resolved]
  - Drug dose omission [Not Recovered/Not Resolved]

NARRATIVE: CASE EVENT DATE: 201508
